FAERS Safety Report 23955355 (Version 2)
Quarter: 2024Q2

REPORT INFORMATION
  Report Type: Spontaneous
  Country: US (occurrence: None)
  Receive Date: 20240610
  Receipt Date: 20240621
  Transmission Date: 20240716
  Serious: Yes (Hospitalization, Other)
  Sender: FDA-Public Use
  Company Number: 2024A133099

PATIENT
  Age: 73 Year
  Sex: Male
  Weight: 61.1 kg

DRUGS (16)
  1. OLAPARIB [Suspect]
     Active Substance: OLAPARIB
     Indication: Adenocarcinoma
     Dosage: 100 MG, EVERY 2 WEEKS;
     Route: 048
     Dates: start: 20240202, end: 20240510
  2. OLAPARIB [Suspect]
     Active Substance: OLAPARIB
     Indication: Adenocarcinoma
     Dosage: 600 MG, EVERY 2 WEEKS (TOTAL ADMINISTERED DOSE:646 MG)
     Route: 048
     Dates: start: 20230928, end: 20231023
  3. OLAPARIB [Suspect]
     Active Substance: OLAPARIB
     Indication: Adenocarcinoma
     Dosage: 100 MG, EVERY 2 WEEKS;
     Route: 048
     Dates: start: 20240219, end: 20240219
  4. OLAPARIB [Suspect]
     Active Substance: OLAPARIB
     Indication: Adenocarcinoma
     Dosage: 100 MG, EVERY 2 WEEKS;
     Route: 048
     Dates: start: 20240315, end: 20240315
  5. LIPITOR [Concomitant]
     Active Substance: ATORVASTATIN CALCIUM
     Dates: start: 20230825
  6. LISINOPRIL [Concomitant]
     Active Substance: LISINOPRIL
     Dates: start: 20230825
  7. ACETAMINOPHEN [Concomitant]
     Active Substance: ACETAMINOPHEN
     Dates: start: 20230825
  8. FLOMAX [Concomitant]
     Active Substance: TAMSULOSIN HYDROCHLORIDE
     Dates: start: 20230825
  9. TEMOVATE [Concomitant]
     Active Substance: CLOBETASOL PROPIONATE
  10. OXYCODONE [Concomitant]
     Active Substance: OXYCODONE\OXYCODONE HYDROCHLORIDE
  11. KENALOG [Concomitant]
     Active Substance: TRIAMCINOLONE ACETONIDE
     Dates: start: 20240119
  12. IBUPROFEN [Concomitant]
     Active Substance: IBUPROFEN
     Dates: start: 20240119
  13. PREDNISONE [Concomitant]
     Active Substance: PREDNISONE
     Dates: start: 20240223
  14. XARELTO [Concomitant]
     Active Substance: RIVAROXABAN
     Dates: start: 20240405
  15. ELIQUIS [Concomitant]
     Active Substance: APIXABAN
     Dates: start: 20240405
  16. ELIGARD [Concomitant]
     Active Substance: LEUPROLIDE ACETATE
     Dates: start: 202001

REACTIONS (4)
  - Deep vein thrombosis [Recovering/Resolving]
  - Anaemia [Unknown]
  - Underdose [Unknown]
  - Overdose [Unknown]

NARRATIVE: CASE EVENT DATE: 20231208
